FAERS Safety Report 5742588-4 (Version None)
Quarter: 2008Q2

REPORT INFORMATION
  Report Type: 
  Country: None (occurrence: None)
  Receive Date: 20080515
  Receipt Date: 20080515
  Transmission Date: 20081010
  Serious: No
  Sender: FDA-Public Use
  Company Number: None

PATIENT
  Age: 77 Year
  Sex: Female
  Weight: 71.2147 kg

DRUGS (1)
  1. DIGITEK BERTEK [Suspect]
     Indication: HEART RATE IRREGULAR
     Dosage: 0.125 MG 1 TAB DAILY
     Dates: start: 20080418, end: 20080426

REACTIONS (5)
  - NECK PAIN [None]
  - PAIN [None]
  - VERTIGO [None]
  - VISION BLURRED [None]
  - VOMITING [None]
